FAERS Safety Report 18334858 (Version 1)
Quarter: 2020Q4

REPORT INFORMATION
  Report Type: Spontaneous
  Country: DE (occurrence: DE)
  Receive Date: 20201001
  Receipt Date: 20201001
  Transmission Date: 20210113
  Serious: Yes (Hospitalization)
  Sender: FDA-Public Use
  Company Number: DE-TEVA-2020-DE-1832072

PATIENT
  Age: 72 Year
  Sex: Male

DRUGS (7)
  1. DULOXETIN [Suspect]
     Active Substance: DULOXETINE
     Dosage: 60 MILLIGRAM DAILY;
  2. RAMIPRIL. [Concomitant]
     Active Substance: RAMIPRIL
     Dosage: 2.5 MILLIGRAM DAILY;
  3. METOPROLOL. [Concomitant]
     Active Substance: METOPROLOL
     Dosage: 190 MILLIGRAM DAILY;
  4. OXCARBAZEPIN [Suspect]
     Active Substance: OXCARBAZEPINE
     Dosage: 900 MILLIGRAM DAILY;
     Route: 048
  5. OXYCODON [Concomitant]
     Active Substance: OXYCODONE
     Dosage: 180 MILLIGRAM DAILY;
  6. PHENPROCOUMON [Concomitant]
     Active Substance: PHENPROCOUMON
     Dosage: 3 MG, BY VALUE
  7. HYDROCHLOROTHIAZID [Concomitant]
     Active Substance: HYDROCHLOROTHIAZIDE
     Dosage: 12.5 MILLIGRAM DAILY;

REACTIONS (3)
  - Paraesthesia [Unknown]
  - Blood creatine phosphokinase increased [Unknown]
  - Muscular weakness [Unknown]
